FAERS Safety Report 5257735-0 (Version None)
Quarter: 2007Q1

REPORT INFORMATION
  Report Type: 
  Country: None (occurrence: None)
  Receive Date: 20070302
  Receipt Date: 20070219
  Transmission Date: 20070707
  Serious: Yes (Other)
  Sender: FDA-Public Use
  Company Number: GXKR2007FR01786

PATIENT
  Age: 68 Year
  Sex: Male

DRUGS (4)
  1. OXALIPLATIN (NGX)(OXALIPLATIN) UNKNOWN [Suspect]
     Indication: COLON CANCER
     Dosage: BIW
     Dates: start: 20030701
  2. LEUCOVORIN CALCIUM (NGX)(CALCIUM FOLINATE) UNKNOWN [Suspect]
     Indication: ADENOCARCINOMA
     Dosage: BIW
     Dates: start: 20030701
  3. FLUOROURACIL [Suspect]
     Indication: ADENOCARCINOMA
     Dosage: BIW
     Dates: start: 20030701
  4. CAPECITABINE (CAPECITABINE) [Concomitant]

REACTIONS (2)
  - FIBROSIS [None]
  - VENOOCCLUSIVE LIVER DISEASE [None]
